FAERS Safety Report 4904868-1 (Version None)
Quarter: 2006Q1

REPORT INFORMATION
  Report Type: 
  Country: None (occurrence: None)
  Receive Date: 20060208
  Receipt Date: 20051014
  Transmission Date: 20060701
  Serious: No
  Sender: FDA-Public Use
  Company Number: US-GLAXOSMITHKLINE-A0578302A

PATIENT
  Age: 45 Year
  Sex: Female

DRUGS (8)
  1. PAROXETINE HCL [Suspect]
     Indication: DEPRESSION
     Dosage: 80MG PER DAY
     Route: 048
     Dates: start: 20050801, end: 20051001
  2. CONCERTA [Concomitant]
  3. RISPERDAL [Concomitant]
  4. VITORIN [Concomitant]
  5. CLARITIN [Concomitant]
  6. TOPAMAX [Concomitant]
  7. LAMICTAL [Concomitant]
  8. ALPRAZOLAM [Concomitant]

REACTIONS (3)
  - DEPRESSED MOOD [None]
  - DRUG INEFFECTIVE [None]
  - RESTLESSNESS [None]
